APPROVED DRUG PRODUCT: ESTRADIOL
Active Ingredient: ESTRADIOL
Strength: 10MCG
Dosage Form/Route: TABLET;VAGINAL
Application: A216550 | Product #001 | TE Code: AB
Applicant: AUROBINDO PHARMA LTD
Approved: Aug 2, 2024 | RLD: No | RS: No | Type: RX